FAERS Safety Report 17178901 (Version 1)
Quarter: 2019Q4

REPORT INFORMATION
  Report Type: Report from Study
  Country: US (occurrence: US)
  Receive Date: 20191219
  Receipt Date: 20191219
  Transmission Date: 20200122
  Serious: No
  Sender: FDA-Public Use
  Company Number: NVSC2019US014210

PATIENT
  Age: 66 Year
  Sex: Female

DRUGS (2)
  1. GILENYA [Suspect]
     Active Substance: FINGOLIMOD HYDROCHLORIDE
     Dosage: 0.5 MG, QD
     Route: 048
     Dates: start: 20191024
  2. GILENYA [Suspect]
     Active Substance: FINGOLIMOD HYDROCHLORIDE
     Indication: MULTIPLE SCLEROSIS
     Dosage: 0.5 MG, QD
     Route: 048
     Dates: start: 20190930

REACTIONS (8)
  - Crying [Unknown]
  - Vomiting [Unknown]
  - Heart rate increased [Not Recovered/Not Resolved]
  - Nightmare [Not Recovered/Not Resolved]
  - Malaise [Unknown]
  - Hypertension [Recovering/Resolving]
  - Headache [Unknown]
  - Palpitations [Unknown]

NARRATIVE: CASE EVENT DATE: 20190930
